FAERS Safety Report 9197079 (Version 2)
Quarter: 2013Q2

REPORT INFORMATION
  Report Type: Spontaneous
  Country: US (occurrence: US)
  Receive Date: 20130328
  Receipt Date: 20130422
  Transmission Date: 20140414
  Serious: No
  Sender: FDA-Public Use
  Company Number: US-PFIZER INC-2013100619

PATIENT
  Age: 80 Year
  Sex: Female
  Weight: 74.83 kg

DRUGS (4)
  1. LYRICA [Suspect]
     Indication: FIBROMYALGIA
     Dosage: 25 MG, 1X/DAY
     Route: 048
     Dates: start: 20130323
  2. LYRICA [Suspect]
     Dosage: 25 MG, 2X/DAY
     Route: 048
     Dates: start: 20130325
  3. NADOLOL [Concomitant]
     Indication: HYPERTENSION
     Dosage: UNK
  4. LIPITOR [Concomitant]
     Indication: BLOOD CHOLESTEROL ABNORMAL
     Dosage: UNK

REACTIONS (2)
  - Drug ineffective [Unknown]
  - Intentional drug misuse [Unknown]
